FAERS Safety Report 8234785-3 (Version None)
Quarter: 2012Q1

REPORT INFORMATION
  Report Type: 
  Country: None (occurrence: None)
  Receive Date: 20120322
  Receipt Date: 20120309
  Transmission Date: 20120608
  Serious: Yes (Hospitalization)
  Sender: FDA-Public Use
  Company Number: 2012IT0093

PATIENT
  Age: 44 Year
  Sex: Female

DRUGS (3)
  1. METHOTREXATE [Concomitant]
  2. KINERET [Suspect]
     Indication: JUVENILE ARTHRITIS
     Dosage: 100 MG/ 0,67 ML
     Route: 058
     Dates: start: 20111129, end: 20111224
  3. DELTA-CORTEF [Concomitant]

REACTIONS (1)
  - INJECTION SITE NECROSIS [None]
